FAERS Safety Report 25598197 (Version 1)
Quarter: 2025Q3

REPORT INFORMATION
  Report Type: Spontaneous
  Country: US (occurrence: US)
  Receive Date: 20250723
  Receipt Date: 20250723
  Transmission Date: 20251021
  Serious: No
  Sender: ASTELLAS
  Company Number: US-ASTELLAS-2025-AER-003169

PATIENT
  Age: 18 Year
  Sex: Male
  Weight: 80 kg

DRUGS (4)
  1. CRESEMBA [Suspect]
     Active Substance: ISAVUCONAZONIUM SULFATE
     Indication: Disseminated mucormycosis
     Route: 042
     Dates: start: 20241020
  2. AMBISOME [Suspect]
     Active Substance: AMPHOTERICIN B
     Indication: Disseminated mucormycosis
     Route: 065
     Dates: start: 20241017
  3. BLINATUMOMAB [Concomitant]
     Active Substance: BLINATUMOMAB
     Indication: Chemotherapy
     Route: 065
  4. DEXAMETHASONE [Concomitant]
     Active Substance: DEXAMETHASONE
     Indication: Product used for unknown indication
     Route: 065

REACTIONS (2)
  - Loss of therapeutic response [Unknown]
  - Off label use [Unknown]

NARRATIVE: CASE EVENT DATE: 20241017
